FAERS Safety Report 23472079 (Version 1)
Quarter: 2024Q1

REPORT INFORMATION
  Report Type: Spontaneous
  Country: DE (occurrence: DE)
  Receive Date: 20240202
  Receipt Date: 20240202
  Transmission Date: 20240410
  Serious: Yes (Hospitalization)
  Sender: FDA-Public Use
  Company Number: DE-Accord-401991

PATIENT
  Age: 5 Year
  Sex: Male
  Weight: 19.9 kg

DRUGS (13)
  1. CYCLOPHOSPHAMIDE [Suspect]
     Active Substance: CYCLOPHOSPHAMIDE
     Indication: B-cell prolymphocytic leukaemia
     Dosage: UNK, (162 MG, 5 DOSES ON DAY 2-DAY 4 OF PROTOCOL)
     Route: 065
     Dates: start: 20231207
  2. CYTARABINE [Suspect]
     Active Substance: CYTARABINE
     Indication: B-cell prolymphocytic leukaemia
     Dosage: 30 MG, QD
     Route: 037
     Dates: start: 20231205
  3. CYTARABINE [Suspect]
     Active Substance: CYTARABINE
     Dosage: 1620 MG, BID
     Route: 065
     Dates: start: 20231210
  4. DEXAMETHASONE [Suspect]
     Active Substance: DEXAMETHASONE
     Indication: B-cell prolymphocytic leukaemia
     Dosage: 2 MG, BID
     Route: 048
     Dates: start: 20231205
  5. METHOTREXATE SODIUM [Suspect]
     Active Substance: METHOTREXATE SODIUM
     Indication: B-cell prolymphocytic leukaemia
     Dosage: 12 MG, QD
     Route: 037
     Dates: start: 20231205, end: 20231205
  6. METHOTREXATE SODIUM [Suspect]
     Active Substance: METHOTREXATE SODIUM
     Dosage: 810 MG, (INFUSION OVER 36 HOURS)
     Route: 037
     Dates: start: 20231206, end: 20231207
  7. PREDNISOLONE [Suspect]
     Active Substance: PREDNISOLONE
     Indication: B-cell prolymphocytic leukaemia
     Dosage: 10 MG, ONCE/SINGLE (ONCE)
     Route: 037
     Dates: start: 20231205
  8. PEGASPARGASE [Suspect]
     Active Substance: PEGASPARGASE
     Indication: B-cell prolymphocytic leukaemia
     Dosage: 810 IU, QD
     Route: 065
     Dates: start: 20231211
  9. VINCRISTINE SULFATE [Suspect]
     Active Substance: VINCRISTINE SULFATE
     Indication: B-cell prolymphocytic leukaemia
     Dosage: UNK, (1.22 ON DAY 1 AND DAY 6)
     Route: 065
     Dates: start: 20231206
  10. AMPHOTERICIN B [Concomitant]
     Active Substance: AMPHOTERICIN B
     Indication: Immunosuppression
     Dosage: UNK
     Route: 065
     Dates: start: 20231102
  11. COTRIMOXAZOLE [Concomitant]
     Active Substance: SULFAMETHOXAZOLE\TRIMETHOPRIM
     Indication: Immunosuppression
     Dosage: UNK
     Route: 048
     Dates: start: 202311
  12. INOTUZUMAB OZOGAMICIN [Concomitant]
     Active Substance: INOTUZUMAB OZOGAMICIN
     Indication: B-cell prolymphocytic leukaemia
     Dosage: 0.41 MG, QD
     Route: 065
     Dates: start: 20231107
  13. Novalgin [Concomitant]
     Indication: Product used for unknown indication
     Dosage: UNK
     Route: 048
     Dates: start: 20231208

REACTIONS (2)
  - Pyrexia [Recovered/Resolved]
  - Mucosal inflammation [Recovered/Resolved]

NARRATIVE: CASE EVENT DATE: 20231216
